FAERS Safety Report 11863288 (Version 4)
Quarter: 2016Q3

REPORT INFORMATION
  Report Type: Spontaneous
  Country: SI (occurrence: SI)
  Receive Date: 20151223
  Receipt Date: 20160829
  Transmission Date: 20161109
  Serious: Yes (Life-Threatening, Hospitalization, Disabling, Other)
  Sender: FDA-Public Use
  Company Number: SI-BAYER-2015-487449

PATIENT
  Age: 22 Year
  Sex: Female

DRUGS (1)
  1. JAYDESS [Suspect]
     Active Substance: LEVONORGESTREL
     Dosage: 14 MCG/24HR, CONT
     Route: 015
     Dates: start: 2014, end: 20151116

REACTIONS (8)
  - Body temperature increased [Recovered/Resolved]
  - Appendicitis [Recovered/Resolved]
  - Tubo-ovarian abscess [Recovered/Resolved]
  - Acute abdomen [Recovered/Resolved]
  - Pneumococcal infection [Recovered/Resolved]
  - Peritonitis [Recovered/Resolved]
  - Abdominal adhesions [Recovered/Resolved]
  - Inflammatory marker increased [Recovered/Resolved]

NARRATIVE: CASE EVENT DATE: 20151116
